FAERS Safety Report 11910422 (Version 2)
Quarter: 2016Q1

REPORT INFORMATION
  Report Type: Report from Study
  Country: CN (occurrence: CN)
  Receive Date: 20160112
  Receipt Date: 20160204
  Transmission Date: 20160526
  Serious: Yes (Hospitalization)
  Sender: FDA-Public Use
  Company Number: CN-AMGEN-CHNCT2016002129

PATIENT
  Age: 50 Year
  Sex: Female

DRUGS (3)
  1. BLINDED PLACEBO [Suspect]
     Active Substance: INVESTIGATIONAL PRODUCT
     Indication: IMMUNE THROMBOCYTOPENIC PURPURA
     Dosage: 3 MUG/KG, UNK
     Route: 042
     Dates: start: 20151209
  2. BLINDED ROMIPLOSTIM - KHK [Suspect]
     Active Substance: ROMIPLOSTIM
     Indication: IMMUNE THROMBOCYTOPENIC PURPURA
     Dosage: 3 MUG/KG, UNK
     Route: 042
     Dates: start: 20151209
  3. NORETHISTERONE [Suspect]
     Active Substance: NORETHINDRONE
     Indication: UTERINE HAEMORRHAGE
     Dosage: 2.5 MG, BID
     Route: 048
     Dates: start: 20151120

REACTIONS (1)
  - Venous thrombosis limb [Recovering/Resolving]

NARRATIVE: CASE EVENT DATE: 20151228
